FAERS Safety Report 6432525-1 (Version None)
Quarter: 2009Q4

REPORT INFORMATION
  Report Type: 
  Country: None (occurrence: None)
  Receive Date: 20091109
  Receipt Date: 20091102
  Transmission Date: 20100525
  Serious: Yes (Other)
  Sender: FDA-Public Use
  Company Number: US-B.I. PHARMACEUTICALS,INC./RIDGEFIELD-2009-BP-12245BP

PATIENT
  Age: 72 Year
  Sex: Male

DRUGS (4)
  1. FLOMAX [Suspect]
     Indication: BENIGN PROSTATIC HYPERPLASIA
     Dosage: 0.4 MG
     Route: 048
     Dates: start: 20070101, end: 20091001
  2. FLOMAX [Suspect]
     Indication: NOCTURIA
     Dosage: 0.8 MG
     Route: 048
     Dates: start: 20091001
  3. ATENOLOL [Concomitant]
     Indication: HYPERTENSION
     Dosage: 0.25 MG
     Route: 048
     Dates: start: 19970101
  4. SIMVASTATIN [Concomitant]
     Indication: BLOOD CHOLESTEROL INCREASED
     Dosage: 40 MG
     Route: 048
     Dates: start: 19970101

REACTIONS (5)
  - DIZZINESS [None]
  - DRUG EFFECT DECREASED [None]
  - NOCTURIA [None]
  - PROSTATE CANCER [None]
  - THERAPEUTIC RESPONSE DECREASED [None]
